FAERS Safety Report 12988067 (Version 1)
Quarter: 2016Q4

REPORT INFORMATION
  Report Type: Report from Study
  Country: JP (occurrence: JP)
  Receive Date: 20161130
  Receipt Date: 20161130
  Transmission Date: 20170207
  Serious: Yes (Other)
  Sender: FDA-Public Use
  Company Number: JP-MYLANLABS-2016M1051466

PATIENT

DRUGS (2)
  1. METHADONE [Suspect]
     Active Substance: METHADONE HYDROCHLORIDE
     Dosage: 30MG
     Route: 048
  2. METHADONE [Suspect]
     Active Substance: METHADONE HYDROCHLORIDE
     Indication: CANCER PAIN
     Dosage: 20MG AND INCREASED
     Route: 048

REACTIONS (8)
  - Somnolence [Unknown]
  - Delirium [Unknown]
  - Pyrexia [Unknown]
  - Constipation [Unknown]
  - Localised oedema [Unknown]
  - Dyspnoea [Unknown]
  - Pain [Unknown]
  - Malaise [Unknown]
